FAERS Safety Report 4521086-X (Version None)
Quarter: 2004Q4

REPORT INFORMATION
  Report Type: 
  Country: None (occurrence: None)
  Receive Date: 20041206
  Receipt Date: 20041122
  Transmission Date: 20050328
  Serious: Yes (Hospitalization, Other)
  Sender: FDA-Public Use
  Company Number: 2004096029

PATIENT
  Age: 53 Year
  Sex: Male

DRUGS (1)
  1. ZYRTEC [Suspect]
     Indication: ILL-DEFINED DISORDER
     Dosage: 20 MG; ORAL
     Route: 048
     Dates: start: 20041001, end: 20041001

REACTIONS (4)
  - BLOOD PRESSURE SYSTOLIC DECREASED [None]
  - DIARRHOEA [None]
  - HYPERHIDROSIS [None]
  - SYNCOPE VASOVAGAL [None]
